FAERS Safety Report 25655101 (Version 1)
Quarter: 2025Q3

REPORT INFORMATION
  Report Type: Spontaneous
  Country: US (occurrence: US)
  Receive Date: 20250807
  Receipt Date: 20250807
  Transmission Date: 20251021
  Serious: Yes (Other)
  Sender: INCYTE
  Company Number: US-INCYTE CORPORATION-2025IN008484

PATIENT
  Age: 1 Year
  Weight: 12 kg

DRUGS (1)
  1. JAKAFI [Suspect]
     Active Substance: RUXOLITINIB
     Indication: Still^s disease
     Dosage: 5 MILLIGRAM, BID ;1MG/KG/DAY
     Route: 065

REACTIONS (4)
  - Interstitial lung disease [Unknown]
  - Disease progression [Unknown]
  - Interleukin level increased [Unknown]
  - Off label use [Unknown]
